FAERS Safety Report 24908478 (Version 2)
Quarter: 2025Q1

REPORT INFORMATION
  Report Type: Spontaneous
  Country: US (occurrence: US)
  Receive Date: 20250131
  Receipt Date: 20250203
  Transmission Date: 20250409
  Serious: No
  Sender: BOEHRINGER INGELHEIM
  Company Number: US-Komodo Health-a23aa000005UVRhAAO

PATIENT
  Age: 22 Year
  Sex: Female

DRUGS (3)
  1. SPEVIGO [Suspect]
     Active Substance: SPESOLIMAB-SBZO
     Indication: Generalised pustular psoriasis
     Dates: start: 20241220
  2. SPEVIGO [Suspect]
     Active Substance: SPESOLIMAB-SBZO
     Dates: start: 20250130
  3. TREMFYA [Concomitant]
     Active Substance: GUSELKUMAB
     Indication: Psoriasis

REACTIONS (3)
  - Pollakiuria [Unknown]
  - Urinary incontinence [Unknown]
  - Chest pain [Unknown]

NARRATIVE: CASE EVENT DATE: 20241220
